FAERS Safety Report 10041956 (Version 1)
Quarter: 2014Q1

REPORT INFORMATION
  Report Type: Spontaneous
  Country: US (occurrence: US)
  Receive Date: 20140327
  Receipt Date: 20140327
  Transmission Date: 20141002
  Serious: No
  Sender: FDA-Public Use
  Company Number: US-ENDO PHARMACEUTICALS INC.-PMDM20130001

PATIENT
  Sex: Female

DRUGS (1)
  1. PROMETHAZINE DM [Suspect]
     Indication: COUGH
     Dosage: 6.25-15MG/5ML
     Route: 048

REACTIONS (2)
  - Dysgeusia [Recovered/Resolved]
  - Drug ineffective [Unknown]
